FAERS Safety Report 6478768-2 (Version None)
Quarter: 2009Q4

REPORT INFORMATION
  Report Type: 
  Country: None (occurrence: None)
  Receive Date: 20091207
  Receipt Date: 20091117
  Transmission Date: 20100525
  Serious: Yes (Hospitalization, Other)
  Sender: FDA-Public Use
  Company Number: US-SANOFI-AVENTIS-2009SA004447

PATIENT
  Age: 78 Year
  Sex: Male

DRUGS (24)
  1. PLAVIX [Suspect]
     Indication: CORONARY ARTERY DISEASE
     Route: 065
  2. LENALIDOMIDE [Suspect]
     Dosage: DAILY FOR 21 DAYS AT BEDTIME
     Route: 048
     Dates: start: 20090101
  3. LENALIDOMIDE [Suspect]
     Dosage: DAILY FOR 21 DAYS
     Route: 048
     Dates: start: 20081031, end: 20090101
  4. GLYCERYL TRINITRATE [Concomitant]
     Indication: ANGINA PECTORIS
     Dosage: 0.2 MG/HR DAILY
     Route: 062
  5. GLYCERYL TRINITRATE [Concomitant]
     Route: 048
  6. ALLOPURINOL [Concomitant]
     Indication: GOUT
     Route: 048
  7. CORDARONE [Concomitant]
     Indication: ATRIAL FIBRILLATION
     Route: 048
  8. AMPICILLIN [Concomitant]
     Indication: URINARY TRACT INFECTION
     Route: 048
  9. ASPIRIN [Concomitant]
     Indication: CEREBROVASCULAR ACCIDENT
     Route: 048
  10. OS-CAL [Concomitant]
     Route: 048
  11. LASIX [Concomitant]
     Route: 048
  12. PROAMATINE [Concomitant]
     Indication: ORTHOSTATIC HYPOTENSION
     Route: 048
  13. PROAMATINE [Concomitant]
     Dosage: AT 5 PM
     Route: 048
  14. NIACIN [Concomitant]
     Route: 048
  15. POTASSIUM CHLORIDE [Concomitant]
     Route: 048
  16. SIMVASTATIN [Concomitant]
     Route: 048
  17. ATORVASTATIN [Concomitant]
  18. XANAX [Concomitant]
  19. TOPROL-XL [Concomitant]
  20. POTASSIUM CHLORIDE [Concomitant]
  21. UROLOGICALS [Concomitant]
  22. DARVOCET-N 100 [Concomitant]
  23. PRILOSEC [Concomitant]
     Indication: PROPHYLAXIS AGAINST GASTROINTESTINAL ULCER
     Dates: start: 20090801
  24. DEXAMETHASONE TAB [Concomitant]

REACTIONS (10)
  - ANAEMIA [None]
  - ANGINA PECTORIS [None]
  - DYSURIA [None]
  - HAEMORRHOIDAL HAEMORRHAGE [None]
  - HYDRONEPHROSIS [None]
  - ORTHOSTATIC HYPOTENSION [None]
  - PYELONEPHRITIS [None]
  - RECTAL HAEMORRHAGE [None]
  - URINARY TRACT INFECTION [None]
  - WOUND DEHISCENCE [None]
